FAERS Safety Report 8295677-7 (Version None)
Quarter: 2012Q2

REPORT INFORMATION
  Report Type: 
  Country: None (occurrence: None)
  Receive Date: 20120418
  Receipt Date: 20120406
  Transmission Date: 20120825
  Serious: Yes (Hospitalization, Other)
  Sender: FDA-Public Use
  Company Number: US-AMGEN-USASP2012017927

PATIENT
  Sex: Male
  Weight: 133.79 kg

DRUGS (30)
  1. PROCRIT [Suspect]
     Dosage: 20000 IU, UNK
  2. CRESTOR [Concomitant]
     Dosage: 10 MG, QD
     Route: 048
  3. MYCOPHENOLATE MOFETIL (CELLCEPT) [Concomitant]
     Dosage: 250 MG, BID
     Route: 048
     Dates: start: 20111222
  4. TOPROL-XL [Concomitant]
     Dosage: 100 MG, QD
     Route: 048
  5. PROTONIX [Concomitant]
     Dosage: 40 MG, QD
     Route: 048
  6. CALCITRIOL [Concomitant]
     Dosage: 1 MUG/ML, UNK
     Route: 048
  7. BUMEX [Concomitant]
     Dosage: 1 UNK, BID
     Route: 048
  8. LIPITOR [Concomitant]
     Dosage: 10 MG, QD
  9. ULORIC [Concomitant]
     Dosage: 80 MG, QD
     Route: 048
  10. VITAMIN D [Concomitant]
     Dosage: 50000 IU, Q2WK
     Route: 048
  11. APIDRA [Concomitant]
     Dosage: 12 UNIT, UNK
     Route: 058
  12. ATACAND [Concomitant]
     Dosage: 4 MG, QD
     Route: 048
  13. GLUCOPHAGE [Concomitant]
     Dosage: 850 MG, BID
  14. PROCRIT [Suspect]
     Indication: NORMOCHROMIC NORMOCYTIC ANAEMIA
     Dosage: 10000 IU, QWK
     Route: 058
     Dates: start: 20001205
  15. NORVASC [Concomitant]
     Dosage: 10 MG, QD
     Route: 048
     Dates: start: 20120125
  16. LANTUS [Concomitant]
     Dosage: 28 IU, QD
     Route: 058
  17. FLU [Concomitant]
     Dosage: 0.5 UNK, UNK
  18. PROGRAF [Concomitant]
     Dosage: 1 MG, BID
  19. METHYLPREDNISOLONE [Concomitant]
     Dosage: 4 MG, QD
     Route: 048
  20. CARDURA [Concomitant]
     Dosage: 4 MG, BID
     Route: 048
  21. ASPIRIN [Concomitant]
     Dosage: 81 MG, QD
     Route: 048
  22. BUMEX [Concomitant]
     Dosage: .5 UNK, UNK
     Route: 048
  23. GLYBURIDE [Concomitant]
     Dosage: 10 MG, BID
  24. DEMADEX [Concomitant]
     Dosage: 20 MG, QD
  25. RAPAMUNE [Concomitant]
  26. HYDROCHLOROTHIAZIDE [Concomitant]
     Dosage: 25 MG, BID
     Route: 048
     Dates: start: 20111115
  27. APIDRA [Concomitant]
     Dosage: 14 IU, UNK
     Route: 058
  28. BUMEX [Concomitant]
     Dosage: 1 MG, QD
     Route: 048
  29. ACEON [Concomitant]
     Dosage: 4 MG, QD
  30. THYMOGLOBULIN [Concomitant]

REACTIONS (16)
  - FLUID OVERLOAD [None]
  - VIRAEMIA [None]
  - ANAEMIA [None]
  - HYPERKALAEMIA [None]
  - SQUAMOUS CELL CARCINOMA [None]
  - MUSCULOSKELETAL DISORDER [None]
  - CARDIAC MURMUR [None]
  - RENAL IMPAIRMENT [None]
  - HERPES ZOSTER DISSEMINATED [None]
  - DELIRIUM [None]
  - GOUTY ARTHRITIS [None]
  - GOUT [None]
  - GAIT DISTURBANCE [None]
  - LIMB INJURY [None]
  - POLYOMAVIRUS TEST POSITIVE [None]
  - BLISTER [None]
